FAERS Safety Report 10661209 (Version 1)
Quarter: 2014Q4

REPORT INFORMATION
  Report Type: Spontaneous
  Country: US (occurrence: None)
  Receive Date: 20141216
  Receipt Date: 20141216
  Transmission Date: 20150529
  Serious: Yes (Other)
  Sender: FDA-Public Use
  Company Number: None

PATIENT
  Age: 57 Year
  Sex: Male
  Weight: 104.33 kg

DRUGS (2)
  1. METHYLPREDNISOLONE. [Suspect]
     Active Substance: METHYLPREDNISOLONE
     Indication: PULMONARY CONGESTION
     Dosage: DOSEPK 21 PILLS
     Route: 048
     Dates: start: 20141204, end: 20141216
  2. METHYLPREDNISOLONE. [Suspect]
     Active Substance: METHYLPREDNISOLONE
     Indication: SINUSITIS
     Dosage: DOSEPK 21 PILLS
     Route: 048
     Dates: start: 20141204, end: 20141216

REACTIONS (4)
  - Thirst [None]
  - Dry mouth [None]
  - Pollakiuria [None]
  - Middle insomnia [None]

NARRATIVE: CASE EVENT DATE: 20141215
